FAERS Safety Report 22658063 (Version 3)
Quarter: 2024Q1

REPORT INFORMATION
  Report Type: Other
  Country: US (occurrence: None)
  Receive Date: 20230630
  Receipt Date: 20240122
  Transmission Date: 20240409
  Serious: Yes (Hospitalization)
  Sender: FDA-Public Use
  Company Number: US-ROCHE-3379355

PATIENT
  Age: 54 Year
  Sex: Female
  Weight: 102.15 kg

DRUGS (1)
  1. OCREVUS [Suspect]
     Active Substance: OCRELIZUMAB
     Indication: Relapsing-remitting multiple sclerosis
     Dosage: TREATMENT IS ON HOLD AS OF 02/MAY/2023. DATE OF TREATMENT: 26/OCT/2021, 25/MAY/2021, 01/SEP/2022, 29
     Route: 042
     Dates: start: 20210525, end: 202301

REACTIONS (2)
  - Urinary tract infection [Not Recovered/Not Resolved]
  - COVID-19 [Unknown]

NARRATIVE: CASE EVENT DATE: 20230329
